FAERS Safety Report 14220940 (Version 2)
Quarter: 2017Q4

REPORT INFORMATION
  Report Type: Report from Study
  Country: AR (occurrence: AR)
  Receive Date: 20171124
  Receipt Date: 20171128
  Transmission Date: 20180321
  Serious: Yes (Death, Hospitalization)
  Sender: FDA-Public Use
  Company Number: PHHY2017AR173765

PATIENT
  Age: 68 Year
  Sex: Female

DRUGS (3)
  1. TAFINLAR [Suspect]
     Active Substance: DABRAFENIB MESYLATE
     Indication: MALIGNANT MELANOMA
     Dosage: UNK
     Route: 065
     Dates: start: 20170804
  2. MEKINIST [Suspect]
     Active Substance: TRAMETINIB DIMETHYL SULFOXIDE
     Indication: MALIGNANT MELANOMA
     Dosage: UNK
     Route: 065
     Dates: start: 20170730
  3. CORAFEN [Concomitant]
     Indication: PRODUCT USED FOR UNKNOWN INDICATION
     Route: 065

REACTIONS (13)
  - Abnormal faeces [Unknown]
  - Bowel movement irregularity [Unknown]
  - Anorectal discomfort [Unknown]
  - Skin odour abnormal [Unknown]
  - Discomfort [Unknown]
  - Constipation [Unknown]
  - Gastrointestinal infection [Unknown]
  - Proctitis [Unknown]
  - Diarrhoea [Unknown]
  - Death [Fatal]
  - Dehydration [Unknown]
  - Necrosis [Unknown]
  - Gastrointestinal injury [Unknown]

NARRATIVE: CASE EVENT DATE: 20171109
